FAERS Safety Report 10055285 (Version 11)
Quarter: 2016Q2

REPORT INFORMATION
  Report Type: Spontaneous
  Country: CA (occurrence: CA)
  Receive Date: 20140403
  Receipt Date: 20160523
  Transmission Date: 20160815
  Serious: Yes (Hospitalization, Other)
  Sender: FDA-Public Use
  Company Number: CA-ROCHE-1374270

PATIENT
  Age: 57 Year
  Sex: Female
  Weight: 126 kg

DRUGS (18)
  1. XOLAIR [Suspect]
     Active Substance: OMALIZUMAB
     Route: 058
     Dates: start: 20130605
  2. VENTOLIN [Concomitant]
     Active Substance: ALBUTEROL SULFATE
  3. XOLAIR [Suspect]
     Active Substance: OMALIZUMAB
     Route: 058
     Dates: start: 201407
  4. SPIRIVA [Concomitant]
     Active Substance: TIOTROPIUM BROMIDE MONOHYDRATE
  5. XOLAIR [Suspect]
     Active Substance: OMALIZUMAB
     Indication: ASTHMA
     Route: 058
     Dates: start: 20121205
  6. XOLAIR [Suspect]
     Active Substance: OMALIZUMAB
     Route: 058
     Dates: start: 20121219
  7. SYMBICORT [Concomitant]
     Active Substance: BUDESONIDE\FORMOTEROL FUMARATE DIHYDRATE
  8. AVAMYS [Concomitant]
     Active Substance: FLUTICASONE FUROATE
  9. BROMOFORM [Concomitant]
  10. FLOVENT [Concomitant]
     Active Substance: FLUTICASONE PROPIONATE
  11. CODEINE SYRUP [Concomitant]
  12. XOLAIR [Suspect]
     Active Substance: OMALIZUMAB
     Route: 058
     Dates: start: 20131120
  13. XOLAIR [Suspect]
     Active Substance: OMALIZUMAB
     Route: 058
     Dates: start: 20160511
  14. SINGULAIR [Concomitant]
     Active Substance: MONTELUKAST SODIUM
  15. AZITHROMYCIN ANHYDROUS. [Concomitant]
     Active Substance: AZITHROMYCIN ANHYDROUS
  16. XOLAIR [Suspect]
     Active Substance: OMALIZUMAB
     Route: 058
     Dates: start: 20131023
  17. XOLAIR [Suspect]
     Active Substance: OMALIZUMAB
     Route: 058
     Dates: start: 20131204
  18. PREDNISOLONE. [Concomitant]
     Active Substance: PREDNISOLONE

REACTIONS (19)
  - Pain [Unknown]
  - Balance disorder [Unknown]
  - Visual impairment [Unknown]
  - Asthma [Recovered/Resolved]
  - Weight increased [Unknown]
  - Respiratory tract infection [Unknown]
  - Abdominal pain [Unknown]
  - Malaise [Unknown]
  - Cardiac disorder [Unknown]
  - Cataract [Unknown]
  - Eye disorder [Unknown]
  - Blood pressure increased [Not Recovered/Not Resolved]
  - Palpitations [Recovered/Resolved]
  - Superficial injury of eye [Unknown]
  - Pain in extremity [Unknown]
  - Nasal congestion [Unknown]
  - Arrhythmia [Unknown]
  - Heart rate increased [Unknown]
  - Fatigue [Unknown]

NARRATIVE: CASE EVENT DATE: 20121220
